FAERS Safety Report 17763474 (Version 2)
Quarter: 2020Q2

REPORT INFORMATION
  Report Type: Spontaneous
  Country: US (occurrence: US)
  Receive Date: 20200509
  Receipt Date: 20200522
  Transmission Date: 20200714
  Serious: Yes (Hospitalization)
  Sender: FDA-Public Use
  Company Number: US-ROCHE-2594510

PATIENT
  Age: 47 Year
  Sex: Male

DRUGS (17)
  1. ACTEMRA [Suspect]
     Active Substance: TOCILIZUMAB
     Indication: HYPOXIA
     Route: 042
     Dates: start: 20200324, end: 20200324
  2. LOPERAMIDE [Concomitant]
     Active Substance: LOPERAMIDE
  3. OXYGEN. [Concomitant]
     Active Substance: OXYGEN
  4. CHOLECALCIFEROL [Concomitant]
     Active Substance: CHOLECALCIFEROL
  5. LOVENOX [Concomitant]
     Active Substance: ENOXAPARIN SODIUM
  6. CALCIUM GLUCONATE. [Concomitant]
     Active Substance: CALCIUM GLUCONATE
  7. ENOXAPARIN [Concomitant]
     Active Substance: ENOXAPARIN
  8. VANCOMYCIN [Concomitant]
     Active Substance: VANCOMYCIN
  9. ZITHROMAX [Concomitant]
     Active Substance: AZITHROMYCIN DIHYDRATE
  10. MELATONIN [Concomitant]
     Active Substance: MELATONIN
  11. REMDESIVIR. [Suspect]
     Active Substance: REMDESIVIR
     Indication: CORONAVIRUS INFECTION
     Route: 065
     Dates: start: 20200325
  12. HYDROXYCHLOROQUINE [Suspect]
     Active Substance: HYDROXYCHLOROQUINE
     Route: 065
     Dates: start: 20200323, end: 20200324
  13. HYDROXYCHLOROQUINE [Suspect]
     Active Substance: HYDROXYCHLOROQUINE
     Indication: CORONAVIRUS INFECTION
     Route: 065
     Dates: start: 20200321, end: 20200323
  14. POTASSIUM CHLORIDE. [Concomitant]
     Active Substance: POTASSIUM CHLORIDE
  15. MULTIVITAMIN AND MINERAL [Concomitant]
  16. ZOSYN [Concomitant]
     Active Substance: PIPERACILLIN SODIUM\TAZOBACTAM SODIUM
  17. TYLENOL [Concomitant]
     Active Substance: ACETAMINOPHEN

REACTIONS (5)
  - Alanine aminotransferase increased [Recovered/Resolved]
  - Off label use [Unknown]
  - Deep vein thrombosis [Unknown]
  - Intentional product use issue [Unknown]
  - Aspartate aminotransferase increased [Recovered/Resolved]

NARRATIVE: CASE EVENT DATE: 20200324
